FAERS Safety Report 25453439 (Version 1)
Quarter: 2025Q2

REPORT INFORMATION
  Report Type: Spontaneous
  Country: DE (occurrence: DE)
  Receive Date: 20250619
  Receipt Date: 20250619
  Transmission Date: 20250716
  Serious: Yes (Hospitalization, Other)
  Sender: AUROBINDO
  Company Number: DE-AUROBINDO-AUR-APL-2022-027419

PATIENT
  Age: 50 Year
  Sex: Female
  Weight: 85 kg

DRUGS (8)
  1. FULVESTRANT [Suspect]
     Active Substance: FULVESTRANT
     Indication: Breast cancer
     Route: 048
     Dates: start: 20200813
  2. IBANDRONIC ACID [Suspect]
     Active Substance: IBANDRONIC ACID
     Indication: Metastases to bone
     Route: 065
     Dates: start: 20200813
  3. PALBOCICLIB [Suspect]
     Active Substance: PALBOCICLIB
     Indication: Breast cancer
     Dosage: 125 MILLIGRAM, ONCE A DAY (DURATION 2 MONTHS 1 DAY, LAST ADMINISTERED ON 14-OCT-2020)
     Route: 048
     Dates: start: 20200814, end: 20201014
  4. CODEINE PHOSPHATE [Concomitant]
     Active Substance: CODEINE PHOSPHATE
     Indication: Cough
     Route: 065
     Dates: start: 20200924
  5. IBUPROFEN [Concomitant]
     Active Substance: IBUPROFEN
     Indication: Pain
     Route: 065
     Dates: start: 2020
  6. LEVOTHYROXINE SODIUM [Concomitant]
     Active Substance: LEVOTHYROXINE SODIUM
     Indication: Hypothyroidism
     Route: 065
  7. PANTOPRAZOLE [Concomitant]
     Active Substance: PANTOPRAZOLE
     Indication: Nausea
     Route: 065
     Dates: start: 20201006
  8. ACETAMINOPHEN\ASPIRIN [Concomitant]
     Active Substance: ACETAMINOPHEN\ASPIRIN
     Indication: Cough
     Route: 065
     Dates: start: 20200924

REACTIONS (5)
  - Interstitial lung disease [Recovered/Resolved]
  - Oesophageal stenosis [Recovered/Resolved]
  - Faecaloma [Recovered/Resolved]
  - Dysphagia [Recovered/Resolved]
  - Seizure [Unknown]

NARRATIVE: CASE EVENT DATE: 20201015
